FAERS Safety Report 8437122 (Version 2)
Quarter: 2012Q4

REPORT INFORMATION
  Report Type: Spontaneous
  Country: FR (occurrence: None)
  Receive Date: 20120221
  Receipt Date: 20120829
  Transmission Date: 20130627
  Serious: Yes (Hospitalization)
  Sender: FDA-Public Use
  Company Number: FRA-CLT-2012002

PATIENT
  Age: 4 Month
  Sex: Male

DRUGS (13)
  1. BETAINE HYDROCHLORIDE [Suspect]
     Indication: HOMOCYSTINURIA
     Dosage: 1000 MG EVERY DAY, ORAL
     Route: 048
     Dates: start: 20090729
  2. NICARDIPINE HYDROCHLORIDE [Concomitant]
  3. SECTRAL [Concomitant]
  4. NICARDIPINE HYDROCHLORIDE [Concomitant]
  5. ACEBUTOLOL HYDROCHLORIDE [Concomitant]
  6. VITAMIN B6 [Concomitant]
  7. LEVOCARNITINE [Concomitant]
  8. VITAMIN B12 [Concomitant]
  9. PYRIDOXIN [Concomitant]
  10. HYDROXOCOBALAMIN [Concomitant]
  11. FOLINATE CALCIUM [Concomitant]
  12. FOLINIC ACID [Concomitant]
  13. L-METHIONINE [Concomitant]

REACTIONS (13)
  - Haemolytic uraemic syndrome [None]
  - Constipation [None]
  - Hypospadias [None]
  - Alanine aminotransferase increased [None]
  - Aspartate aminotransferase increased [None]
  - Gamma-glutamyltransferase increased [None]
  - Bronchitis [None]
  - Hypertension [None]
  - Strabismus [None]
  - Cerebral atrophy [None]
  - Pyrexia [None]
  - Respiratory distress [None]
  - Tachycardia [None]
